FAERS Safety Report 25144010 (Version 1)
Quarter: 2025Q2

REPORT INFORMATION
  Report Type: Spontaneous
  Country: CH (occurrence: CH)
  Receive Date: 20250401
  Receipt Date: 20250401
  Transmission Date: 20250717
  Serious: Yes (Death, Other)
  Sender: BRISTOL MYERS SQUIBB
  Company Number: CH-BRISTOL-MYERS SQUIBB COMPANY-2025-046309

PATIENT
  Age: 68 Year
  Sex: Female
  Weight: 70 kg

DRUGS (3)
  1. YERVOY [Suspect]
     Active Substance: IPILIMUMAB
     Indication: Ovarian clear cell carcinoma
     Dosage: 70MG (1 MG/KG KG) EVERY 6 WEEKS
     Route: 040
     Dates: start: 20240621
  2. OPDIVO [Suspect]
     Active Substance: NIVOLUMAB
     Indication: Ovarian clear cell carcinoma
     Dosage: 210MG (3 MG/KG KG) EVERY 2 WEEKS
     Route: 040
     Dates: start: 20240621
  3. AMOXICILLIN\CLAVULANATE POTASSIUM [Concomitant]
     Active Substance: AMOXICILLIN\CLAVULANATE POTASSIUM
     Indication: Pneumonitis
     Dosage: 2X1G P.O.
     Dates: start: 20240730, end: 20240730

REACTIONS (1)
  - Death [Fatal]
